FAERS Safety Report 11389507 (Version 1)
Quarter: 2015Q3

REPORT INFORMATION
  Report Type: Spontaneous
  Country: NL (occurrence: NL)
  Receive Date: 20150817
  Receipt Date: 20150817
  Transmission Date: 20151125
  Serious: Yes (Other)
  Sender: FDA-Public Use
  Company Number: NL-PFIZER INC-2015266715

PATIENT
  Age: 50 Year
  Sex: Female
  Weight: 105 kg

DRUGS (15)
  1. MOVICOLON [Concomitant]
     Active Substance: POLYETHYLENE GLYCOL 3350\POTASSIUM CHLORIDE\SODIUM BICARBONATE\SODIUM CHLORIDE
     Dosage: 1 DF, 2X/DAY
     Route: 048
     Dates: start: 20150421
  2. QUETIAPINE FUMARATE. [Interacting]
     Active Substance: QUETIAPINE FUMARATE
     Indication: PSYCHOTIC DISORDER
     Dosage: 300 MG, 2X/DAY
     Route: 048
     Dates: start: 2012, end: 2015
  3. PERSANTINE [Concomitant]
     Active Substance: DIPYRIDAMOLE
     Dosage: 200 MG, 2X/DAY
     Route: 048
     Dates: start: 20150418
  4. DIAZEPAM. [Concomitant]
     Active Substance: DIAZEPAM
     Dosage: 5 MG, 1X/DAY
     Route: 048
     Dates: start: 20150601
  5. LIPITOR [Concomitant]
     Active Substance: ATORVASTATIN CALCIUM
     Dosage: 40 MG, 1X/DAY
     Route: 048
     Dates: start: 20150418
  6. QUETIAPINE FUMARATE. [Interacting]
     Active Substance: QUETIAPINE FUMARATE
     Dosage: 400 MG PER DAY (DOSE AND FREQUENCY UNSPECIFIED)
     Dates: start: 2015, end: 20150630
  7. DIVISUN [Concomitant]
     Dosage: 800 IU, 1X/DAY
     Route: 048
     Dates: start: 20150418
  8. DUSPATAL /00139402/ [Concomitant]
     Dosage: 200 MG, 2X/DAY
     Route: 048
     Dates: start: 20150418
  9. SERTRALINE HCL [Suspect]
     Active Substance: SERTRALINE HYDROCHLORIDE
     Indication: DEPRESSION
     Dosage: 100 MG, 1X/DAY
     Route: 048
     Dates: start: 20150513
  10. MICONAZOLE NITRATE. [Concomitant]
     Active Substance: MICONAZOLE NITRATE
     Dosage: 1 DF, 2X/DAY AS NEEDED
     Route: 003
     Dates: start: 20150421
  11. CYRESS [Concomitant]
     Active Substance: BARNIDIPINE HYDROCHLORIDE
     Dosage: 20 MG, 1X/DAY
     Route: 048
     Dates: start: 20150526
  12. SYMBICORT [Interacting]
     Active Substance: BUDESONIDE\FORMOTEROL FUMARATE DIHYDRATE
     Indication: DYSPNOEA
     Dosage: 1 DF, 3X/DAY AS NEEDED
     Route: 055
     Dates: start: 20150309
  13. LORAZEPAM. [Concomitant]
     Active Substance: LORAZEPAM
     Dosage: 1 MG, 3X/DAY AS NEEDED
     Route: 048
     Dates: start: 20150521
  14. PARACETAMOL [Concomitant]
     Active Substance: ACETAMINOPHEN
     Dosage: 1000 MG, 2 DF 3X/DAY AS NEEDED
     Route: 048
     Dates: start: 20150421
  15. ACETYLSALICYLZUUR [Concomitant]
     Dosage: 80 MG, 1X/DAY
     Route: 048
     Dates: start: 20150518

REACTIONS (3)
  - Palpitations [Unknown]
  - Drug interaction [Unknown]
  - Electrocardiogram QT prolonged [Recovered/Resolved]

NARRATIVE: CASE EVENT DATE: 20150616
